FAERS Safety Report 16352214 (Version 1)
Quarter: 2019Q2

REPORT INFORMATION
  Report Type: Spontaneous
  Country: GB (occurrence: GB)
  Receive Date: 20190524
  Receipt Date: 20190524
  Transmission Date: 20190711
  Serious: Yes (Death)
  Sender: FDA-Public Use
  Company Number: GB-DSJP-DSE-2019-119039

PATIENT

DRUGS (1)
  1. EDOXABAN [Suspect]
     Active Substance: EDOXABAN TOSYLATE
     Indication: SUBCLAVIAN VEIN THROMBOSIS
     Dosage: UNK

REACTIONS (1)
  - Cerebrovascular accident [Fatal]
